FAERS Safety Report 22304313 (Version 1)
Quarter: 2023Q2

REPORT INFORMATION
  Report Type: Spontaneous
  Country: CN (occurrence: CN)
  Receive Date: 20230510
  Receipt Date: 20230510
  Transmission Date: 20230721
  Serious: Yes (Hospitalization)
  Sender: FDA-Public Use
  Company Number: CN-Merck Healthcare KGaA-9399677

PATIENT
  Age: 65 Year
  Sex: Female
  Weight: 47 kg

DRUGS (9)
  1. ERBITUX [Suspect]
     Active Substance: CETUXIMAB
     Indication: Rectal neoplasm
     Dosage: 580 MG, DAILY
     Route: 041
     Dates: start: 20230327, end: 20230327
  2. OXALIPLATIN [Suspect]
     Active Substance: OXALIPLATIN
     Indication: Rectal neoplasm
     Dosage: 120 MG, DAILY
     Route: 041
     Dates: start: 20230327, end: 20230327
  3. FLUOROURACIL [Suspect]
     Active Substance: FLUOROURACIL
     Indication: Rectal neoplasm
     Dosage: .575 G, DAILY
     Route: 041
     Dates: start: 20230327, end: 20230327
  4. FLUOROURACIL [Suspect]
     Active Substance: FLUOROURACIL
     Dosage: 1.75 G, DAILY
     Route: 041
     Dates: start: 20230327, end: 20230328
  5. LEUCOVORIN CALCIUM [Suspect]
     Active Substance: LEUCOVORIN CALCIUM
     Indication: Rectal neoplasm
     Dosage: .58 G, DAILY
     Route: 041
     Dates: start: 20230327, end: 20230327
  6. DEXTROSE [Concomitant]
     Active Substance: DEXTROSE\DEXTROSE MONOHYDRATE
     Indication: Product used for unknown indication
     Dosage: 250 ML, UNKNOWN
     Route: 065
     Dates: start: 20230327
  7. SODIUM CHLORIDE [Concomitant]
     Active Substance: SODIUM CHLORIDE
     Indication: Product used for unknown indication
     Dosage: 250 ML, UNKNOWN
     Route: 065
     Dates: start: 20230327
  8. SODIUM CHLORIDE [Concomitant]
     Active Substance: SODIUM CHLORIDE
     Dosage: 100 ML, UNKNOWN
     Route: 065
     Dates: start: 20230327
  9. SODIUM CHLORIDE [Concomitant]
     Active Substance: SODIUM CHLORIDE
     Dosage: 500 ML, UNKNOWN
     Route: 065
     Dates: start: 20230327

REACTIONS (1)
  - Myelosuppression [Recovering/Resolving]

NARRATIVE: CASE EVENT DATE: 20230414
